FAERS Safety Report 5635544-8 (Version None)
Quarter: 2008Q1

REPORT INFORMATION
  Report Type: 
  Country: None (occurrence: None)
  Receive Date: 20080222
  Receipt Date: 20080212
  Transmission Date: 20080703
  Serious: Yes (Other)
  Sender: FDA-Public Use
  Company Number: FR-PFIZER INC-2008014847

PATIENT
  Sex: Female
  Weight: 61.4 kg

DRUGS (5)
  1. TAHOR [Suspect]
     Indication: ISCHAEMIC STROKE
  2. ZOLOFT [Suspect]
     Indication: DEPRESSION
  3. PARACETAMOL [Suspect]
     Indication: BONE PAIN
  4. DI-ANTALVIC [Suspect]
     Indication: PAIN
  5. EFFERALGAN CODEINE [Concomitant]
     Indication: BONE PAIN

REACTIONS (2)
  - BLOOD ALKALINE PHOSPHATASE INCREASED [None]
  - TRANSAMINASES INCREASED [None]
